FAERS Safety Report 23533102 (Version 1)
Quarter: 2024Q1

REPORT INFORMATION
  Report Type: Report from Study
  Country: US (occurrence: US)
  Receive Date: 20240216
  Receipt Date: 20240216
  Transmission Date: 20240410
  Serious: Yes (Other)
  Sender: FDA-Public Use
  Company Number: US-UCBSA-2024007031

PATIENT
  Age: 57 Year
  Sex: Male

DRUGS (1)
  1. BIMEKIZUMAB [Suspect]
     Active Substance: BIMEKIZUMAB
     Indication: Psoriasis
     Dosage: 320 MILLIGRAM, EV 4 WEEKS
     Route: 058
     Dates: start: 20240103, end: 20240201

REACTIONS (15)
  - Depression [Recovering/Resolving]
  - Night sweats [Recovering/Resolving]
  - Diarrhoea [Recovering/Resolving]
  - Headache [Recovering/Resolving]
  - Oral pain [Recovering/Resolving]
  - Feeling abnormal [Recovering/Resolving]
  - Mental disorder [Recovering/Resolving]
  - Lethargy [Recovering/Resolving]
  - Asthenia [Recovering/Resolving]
  - Abdominal discomfort [Recovering/Resolving]
  - Weight decreased [Recovering/Resolving]
  - Feeding disorder [Recovering/Resolving]
  - Decreased appetite [Recovering/Resolving]
  - Illness [Recovering/Resolving]
  - Head discomfort [Recovering/Resolving]

NARRATIVE: CASE EVENT DATE: 20240209
